FAERS Safety Report 8975593 (Version 2)
Quarter: 2013Q2

REPORT INFORMATION
  Report Type: Spontaneous
  Country: US (occurrence: US)
  Receive Date: 20121219
  Receipt Date: 20130606
  Transmission Date: 20140414
  Serious: No
  Sender: FDA-Public Use
  Company Number: US-AMGEN-USASP2012072372

PATIENT
  Sex: Male

DRUGS (3)
  1. PROLIA [Suspect]
     Indication: BONE DENSITY DECREASED
     Dosage: UNK
     Dates: start: 20120924
  2. PROLIA [Suspect]
  3. LUPRON [Concomitant]
     Indication: PROSTATE CANCER
     Dosage: UNK

REACTIONS (3)
  - Malaise [Unknown]
  - Mobility decreased [Unknown]
  - Condition aggravated [Unknown]
